FAERS Safety Report 6557688-9 (Version None)
Quarter: 2010Q1

REPORT INFORMATION
  Report Type: 
  Country: None (occurrence: None)
  Receive Date: 20100126
  Receipt Date: 20091006
  Transmission Date: 20100710
  Serious: Yes (Hospitalization)
  Sender: FDA-Public Use
  Company Number: LMI-2009-00277

PATIENT
  Age: 60 Year
  Sex: Female
  Weight: 104.3273 kg

DRUGS (19)
  1. DEFINITY [Suspect]
     Indication: CARDIAC MURMUR
     Dosage: 1.5 ML DEFINITY DILUTED IN 8.5 MLOF NORMAL SALINE (0.5 ML),INTRAVENOUS
     Route: 042
     Dates: start: 20091005, end: 20091005
  2. DEFINITY [Suspect]
     Indication: ECHOCARDIOGRAM
     Dosage: 1.5 ML DEFINITY DILUTED IN 8.5 MLOF NORMAL SALINE (0.5 ML),INTRAVENOUS
     Route: 042
     Dates: start: 20091005, end: 20091005
  3. DEFINITY [Suspect]
     Indication: PARATHYROID GLAND OPERATION
     Dosage: 1.5 ML DEFINITY DILUTED IN 8.5 MLOF NORMAL SALINE (0.5 ML),INTRAVENOUS
     Route: 042
     Dates: start: 20091005, end: 20091005
  4. DEFINITY [Suspect]
     Indication: PREOPERATIVE CARE
     Dosage: 1.5 ML DEFINITY DILUTED IN 8.5 MLOF NORMAL SALINE (0.5 ML),INTRAVENOUS
     Route: 042
     Dates: start: 20091005, end: 20091005
  5. ZOCOR [Concomitant]
  6. VITAMIN D [Concomitant]
  7. VERAPAMIL SR(VERAPAMIL) [Concomitant]
  8. TRICOR [Concomitant]
  9. SLOW-FE (FERROUS SULFATE) [Concomitant]
  10. PROTONIX [Concomitant]
  11. PLAVIX [Concomitant]
  12. NOVOLOG [Concomitant]
  13. NITROSTAT [Concomitant]
  14. LOPRESSOR (METOPROLOL TARTRATE) (50 MILLIGRAM, TABLETS) [Concomitant]
  15. LANTUS [Concomitant]
  16. IMDUR [Concomitant]
  17. FUROSEMIDE [Concomitant]
  18. FISH OIL (FISH OIL) [Concomitant]
  19. ASPIRIN [Concomitant]

REACTIONS (3)
  - BLOOD PRESSURE INCREASED [None]
  - DIZZINESS [None]
  - NAUSEA [None]
